FAERS Safety Report 4734059-9 (Version None)
Quarter: 2005Q3

REPORT INFORMATION
  Report Type: 
  Country: None (occurrence: None)
  Receive Date: 20050721
  Receipt Date: 20050502
  Transmission Date: 20060218
  Serious: No
  Sender: FDA-Public Use
  Company Number: 2005SP000512

PATIENT
  Age: 73 Year
  Sex: Male
  Weight: 90.7194 kg

DRUGS (2)
  1. LUNESTA [Suspect]
     Dosage: SEE IMAGE
     Route: 048
     Dates: start: 20050422, end: 20050422
  2. LUNESTA [Suspect]
     Dosage: SEE IMAGE
     Route: 048
     Dates: start: 20050423

REACTIONS (2)
  - DRUG INEFFECTIVE [None]
  - INSOMNIA [None]
